FAERS Safety Report 13988270 (Version 3)
Quarter: 2018Q1

REPORT INFORMATION
  Report Type: Report from Study
  Country: US (occurrence: US)
  Receive Date: 20170919
  Receipt Date: 20180120
  Transmission Date: 20180508
  Serious: Yes (Other)
  Sender: FDA-Public Use
  Company Number: PHEH2017US030215

PATIENT
  Age: 61 Year
  Sex: Female

DRUGS (1)
  1. GILENYA [Suspect]
     Active Substance: FINGOLIMOD HYDROCHLORIDE
     Indication: RELAPSING-REMITTING MULTIPLE SCLEROSIS
     Dosage: 0.5 MG, QD
     Route: 048
     Dates: start: 20170908

REACTIONS (5)
  - Multiple sclerosis [Unknown]
  - Muscular weakness [Unknown]
  - Heart rate decreased [Unknown]
  - Gait disturbance [Unknown]
  - Balance disorder [Unknown]

NARRATIVE: CASE EVENT DATE: 20170913
